FAERS Safety Report 10429677 (Version 2)
Quarter: 2014Q3

REPORT INFORMATION
  Report Type: Spontaneous
  Country: FR (occurrence: FR)
  Receive Date: 20140904
  Receipt Date: 20140904
  Transmission Date: 20150326
  Serious: Yes (Hospitalization)
  Sender: FDA-Public Use
  Company Number: PHHY2012FR084164

PATIENT
  Age: 49 Year
  Sex: Female

DRUGS (1)
  1. METHYSERGIDE MALEATE [Suspect]
     Active Substance: METHYSERGIDE MALEATE
     Indication: CLUSTER HEADACHE
     Dosage: 1.65 MG, BID

REACTIONS (10)
  - Cardiac murmur [Unknown]
  - Mitral valve stenosis [Unknown]
  - Tricuspid valve incompetence [Unknown]
  - Mitral valve incompetence [Unknown]
  - Dyspnoea exertional [Unknown]
  - Palpitations [Unknown]
  - Pulmonary arterial hypertension [Unknown]
  - Sinus tachycardia [Unknown]
  - Decreased activity [Unknown]
  - Cardiac valve disease [Unknown]
